FAERS Safety Report 24622966 (Version 3)
Quarter: 2025Q4

REPORT INFORMATION
  Report Type: Report from Study
  Country: CA (occurrence: CA)
  Receive Date: 20241115
  Receipt Date: 20251027
  Transmission Date: 20260117
  Serious: Yes (Hospitalization, Other)
  Sender: ABBVIE
  Company Number: CA-ABBVIE-6001084

PATIENT
  Age: 29 Year
  Sex: Male
  Weight: 77 kg

DRUGS (1)
  1. SKYRIZI [Suspect]
     Active Substance: RISANKIZUMAB-RZAA
     Indication: Crohn^s disease
     Dosage: LAST DOSE 17 OCT 2025
     Route: 058
     Dates: start: 20240722

REACTIONS (9)
  - Abdominal pain [Recovered/Resolved]
  - Feeling abnormal [Unknown]
  - Abdominal tenderness [Unknown]
  - Unevaluable event [Unknown]
  - Abdominal rigidity [Unknown]
  - Impaired work ability [Unknown]
  - Intestinal resection [Recovering/Resolving]
  - Social problem [Unknown]
  - Pain [Not Recovered/Not Resolved]

NARRATIVE: CASE EVENT DATE: 20240101
